FAERS Safety Report 14460667 (Version 1)
Quarter: 2018Q1

REPORT INFORMATION
  Report Type: Spontaneous
  Country: US (occurrence: US)
  Receive Date: 20180130
  Receipt Date: 20180130
  Transmission Date: 20180509
  Serious: No
  Sender: FDA-Public Use
  Company Number: None

PATIENT
  Sex: Female
  Weight: 26.55 kg

DRUGS (1)
  1. CETIRIZINE [Suspect]
     Active Substance: CETIRIZINE HYDROCHLORIDE
     Indication: MULTIPLE ALLERGIES
     Dosage: ?          QUANTITY:1 TABLET(S);?
     Route: 048
     Dates: start: 20180101, end: 20180128

REACTIONS (6)
  - Rash generalised [None]
  - Withdrawal syndrome [None]
  - Therapy cessation [None]
  - Rash pruritic [None]
  - Abdominal pain [None]
  - Nightmare [None]

NARRATIVE: CASE EVENT DATE: 20180129
